FAERS Safety Report 6529367-5 (Version None)
Quarter: 2010Q1

REPORT INFORMATION
  Report Type: 
  Country: None (occurrence: None)
  Receive Date: 20100104
  Receipt Date: 20091222
  Transmission Date: 20100710
  Serious: Yes (Death)
  Sender: FDA-Public Use
  Company Number: AE-2009-325

PATIENT
  Age: 57 Year
  Sex: Male

DRUGS (3)
  1. METOPROLOL [Suspect]
     Indication: HYPERTENSION
     Dosage: 25MG, TID, ORAL
     Route: 048
  2. INDAPAMIDE [Concomitant]
  3. ENALAPRIL [Concomitant]

REACTIONS (6)
  - BLOOD PRESSURE INCREASED [None]
  - HEADACHE [None]
  - JUGULAR VEIN DISTENSION [None]
  - NO THERAPEUTIC RESPONSE [None]
  - RASH [None]
  - SUDDEN DEATH [None]
